FAERS Safety Report 22827895 (Version 13)
Quarter: 2024Q1

REPORT INFORMATION
  Report Type: Spontaneous
  Country: US (occurrence: US)
  Receive Date: 20230816
  Receipt Date: 20240319
  Transmission Date: 20240410
  Serious: Yes (Hospitalization, Other)
  Sender: FDA-Public Use
  Company Number: US-PFIZER INC-PV202300140005

PATIENT
  Age: 78 Year
  Sex: Female

DRUGS (2)
  1. CIBINQO [Suspect]
     Active Substance: ABROCITINIB
     Dosage: 100 MG
     Route: 048
  2. COLLAGENASE SANTYL [Concomitant]
     Active Substance: COLLAGENASE CLOSTRIDIUM HISTOLYTICUM
     Dosage: UNK

REACTIONS (20)
  - Rash erythematous [Not Recovered/Not Resolved]
  - Urticaria [Unknown]
  - Pain [Unknown]
  - Neoplasm malignant [Not Recovered/Not Resolved]
  - Haemorrhage [Unknown]
  - Leprosy [Unknown]
  - Renal disorder [Not Recovered/Not Resolved]
  - Liver disorder [Not Recovered/Not Resolved]
  - Malaise [Unknown]
  - Pruritus [Unknown]
  - Chronic pigmented purpura [Unknown]
  - Sleep disorder due to general medical condition, hypersomnia type [Unknown]
  - Illness [Unknown]
  - Somnolence [Unknown]
  - Memory impairment [Unknown]
  - Disturbance in attention [Unknown]
  - Wound [Unknown]
  - Fall [Unknown]
  - Limb injury [Unknown]
  - Confusional state [Unknown]

NARRATIVE: CASE EVENT DATE: 20231018
